APPROVED DRUG PRODUCT: NYSTATIN
Active Ingredient: NYSTATIN
Strength: 100,000 UNITS
Dosage Form/Route: TABLET;VAGINAL
Application: A062460 | Product #001
Applicant: PHARMADERM DIV ALTANA INC
Approved: Nov 9, 1983 | RLD: No | RS: No | Type: DISCN